FAERS Safety Report 8957720 (Version 2)
Quarter: 2013Q1

REPORT INFORMATION
  Report Type: Spontaneous
  Country: CA (occurrence: CA)
  Receive Date: 20121211
  Receipt Date: 20130108
  Transmission Date: 20140127
  Serious: Yes (Other)
  Sender: FDA-Public Use
  Company Number: CA-ALEXION PHARMACEUTICALS INC.-A201202333

PATIENT
  Age: 55 Year
  Sex: Male
  Weight: 83.9 kg

DRUGS (26)
  1. SOLIRIS 300MG [Suspect]
     Indication: PAROXYSMAL NOCTURNAL HAEMOGLOBINURIA
     Dosage: 600 MG, QW
     Route: 042
     Dates: start: 20110228, end: 20110322
  2. SOLIRIS 300MG [Suspect]
     Dosage: 900 MG, Q2W
     Route: 042
     Dates: start: 20110328, end: 20120227
  3. SOLIRIS 300MG [Suspect]
     Dosage: 1200 MG, Q2W
     Dates: end: 20120730
  4. SOLIRIS 300MG [Suspect]
     Dosage: 600 MG, QW
     Route: 042
     Dates: start: 20121022, end: 20121112
  5. SOLIRIS 300MG [Suspect]
     Dosage: 900 MG, Q2W
     Dates: start: 20121119
  6. PREDNISOLONE [Concomitant]
     Indication: PAROXYSMAL NOCTURNAL HAEMOGLOBINURIA
     Dosage: 40 MG, QD
  7. FOLIC ACID [Concomitant]
     Indication: PAROXYSMAL NOCTURNAL HAEMOGLOBINURIA
     Dosage: 5 MG, QD
  8. VITAMIN B12 [Concomitant]
     Indication: IRON DEFICIENCY
     Dosage: 1200 MG, QD
  9. FRAGMIN [Concomitant]
     Indication: ANTICOAGULANT THERAPY
     Dosage: 5000 IU, QD
     Route: 058
  10. FOSAMAX [Concomitant]
     Indication: OSTEOPOROSIS PROPHYLAXIS
     Dosage: 70 MG, QW
  11. HUMALOG [Concomitant]
     Dosage: 28 IU, QD AM
  12. HUMALOG [Concomitant]
     Dosage: 16 IU, QD PM
  13. OMEGA 3 [Concomitant]
     Dosage: UNK, QD
     Route: 048
  14. CALCIUM [Concomitant]
     Dosage: UNK, QD
  15. MULTIVITAMIN [Concomitant]
     Dosage: UNK, QD
  16. VITAMIN D [Concomitant]
     Dosage: UNK, QD
  17. COENZYME Q10 [Concomitant]
     Dosage: UNK, QD
  18. GLUTAMINE COMPLEX [Concomitant]
     Dosage: UNK, QD
  19. VITAMIN B1 [Concomitant]
     Dosage: UNK, QD
  20. VITAMIN B6 [Concomitant]
     Dosage: UNK, QD
  21. SPIRONOLACTONE [Concomitant]
     Dosage: 600 MG, BID
  22. FUROSEMIDE [Concomitant]
     Dosage: 20 MG, QD
  23. PANTOPRAZOLE [Concomitant]
     Dosage: 40 MG, QD
  24. CLOXACILLIN [Concomitant]
     Dosage: UNK, QD
     Route: 042
     Dates: start: 20120622, end: 20120712
  25. CEPHOLAXIN [Concomitant]
     Dosage: 1000 MG, TID
     Route: 048
  26. KEFLEX [Concomitant]
     Dosage: 1200 MG, QID
     Dates: start: 20120924, end: 201212

REACTIONS (6)
  - Heart rate irregular [Not Recovered/Not Resolved]
  - Haemoglobin decreased [Not Recovered/Not Resolved]
  - Platelet count decreased [Unknown]
  - Dyspnoea [Not Recovered/Not Resolved]
  - Asthenia [Not Recovered/Not Resolved]
  - Oral herpes [Not Recovered/Not Resolved]
